FAERS Safety Report 6273936-7 (Version None)
Quarter: 2009Q3

REPORT INFORMATION
  Report Type: 
  Country: None (occurrence: None)
  Receive Date: 20090720
  Receipt Date: 20090709
  Transmission Date: 20100115
  Serious: Yes (Hospitalization)
  Sender: FDA-Public Use
  Company Number: JP-MERCK-0906USA05766

PATIENT
  Age: 80 Year
  Sex: Female

DRUGS (13)
  1. ZETIA [Suspect]
     Indication: DYSLIPIDAEMIA
     Route: 048
     Dates: start: 20090310, end: 20090619
  2. WARFARIN POTASSIUM [Suspect]
     Route: 048
     Dates: start: 20090224, end: 20090619
  3. ASPIRIN [Concomitant]
     Route: 065
     Dates: end: 20090619
  4. BUCOLOME [Concomitant]
     Route: 065
     Dates: start: 20090303, end: 20090619
  5. ROSUVASTATIN CALCIUM [Concomitant]
     Route: 065
  6. AZELNIDIPINE [Concomitant]
     Route: 065
  7. VALSARTAN [Concomitant]
     Route: 065
  8. AZOSEMIDE [Concomitant]
     Route: 065
  9. METILDIGOXIN [Concomitant]
     Route: 065
  10. CARVEDILOL [Concomitant]
     Route: 065
  11. LIMAPROST ALFADEX [Concomitant]
     Route: 065
  12. TAKA-DIASTASE [Concomitant]
     Route: 065
  13. FAMOTIDINE [Concomitant]
     Route: 065

REACTIONS (4)
  - ANAEMIA [None]
  - DRUG INTERACTION [None]
  - HAEMORRHAGE [None]
  - INTERNATIONAL NORMALISED RATIO INCREASED [None]
